FAERS Safety Report 7285992-8 (Version None)
Quarter: 2011Q1

REPORT INFORMATION
  Report Type: 
  Country: None (occurrence: None)
  Receive Date: 20110210
  Receipt Date: 20101221
  Transmission Date: 20110831
  Serious: Yes (Other)
  Sender: FDA-Public Use
  Company Number: US-BAYER-200942789NA

PATIENT
  Sex: Female
  Weight: 110 kg

DRUGS (3)
  1. LOESTRIN 1.5/30 [Concomitant]
  2. PRILOSEC [Concomitant]
     Dosage: 10 MG, CONT
     Route: 048
  3. YASMIN [Suspect]
     Indication: ORAL CONTRACEPTION
     Dosage: UNK
     Dates: start: 20041101, end: 20061101

REACTIONS (6)
  - PAIN [None]
  - MENSTRUAL DISORDER [None]
  - PANCREATITIS [None]
  - CHOLECYSTECTOMY [None]
  - MENORRHAGIA [None]
  - DYSMENORRHOEA [None]
